FAERS Safety Report 7741606-1 (Version None)
Quarter: 2011Q3

REPORT INFORMATION
  Report Type: 
  Country: None (occurrence: None)
  Receive Date: 20110909
  Receipt Date: 20110831
  Transmission Date: 20111222
  Serious: Yes (Hospitalization)
  Sender: FDA-Public Use
  Company Number: US-ASTRAZENECA-2011SE08531

PATIENT
  Age: 53 Year
  Sex: Female
  Weight: 48.5 kg

DRUGS (7)
  1. ROPINIROLE [Concomitant]
     Indication: MUSCLE SPASMS
     Route: 048
  2. XANAX [Concomitant]
     Indication: BIPOLAR DISORDER
     Route: 048
  3. CITALOPRAM HPR [Concomitant]
     Indication: BIPOLAR DISORDER
     Route: 048
  4. IBUPROFEN [Concomitant]
     Indication: PAIN
     Route: 048
  5. SEROQUEL XR [Suspect]
     Indication: BIPOLAR DISORDER
     Route: 048
     Dates: start: 20060101
  6. PLAVIX [Concomitant]
     Indication: CEREBROVASCULAR ACCIDENT
     Route: 048
  7. CELEXA [Concomitant]
     Indication: DEPRESSION

REACTIONS (6)
  - TRANSIENT ISCHAEMIC ATTACK [None]
  - MUSCLE TWITCHING [None]
  - INSOMNIA [None]
  - WRONG TECHNIQUE IN DRUG USAGE PROCESS [None]
  - MIDDLE INSOMNIA [None]
  - DRUG DOSE OMISSION [None]
